FAERS Safety Report 9011085 (Version 1)
Quarter: 2013Q1

REPORT INFORMATION
  Report Type: Spontaneous
  Country: US (occurrence: US)
  Receive Date: 20130109
  Receipt Date: 20130109
  Transmission Date: 20140127
  Serious: No
  Sender: FDA-Public Use
  Company Number: US-ASTRAZENECA-2012SE92739

PATIENT
  Age: 71 Year
  Sex: Female
  Weight: 65.3 kg

DRUGS (4)
  1. CRESTOR [Suspect]
     Indication: BLOOD CHOLESTEROL INCREASED
     Route: 048
     Dates: start: 2011
  2. LEVOTHYROXINE [Concomitant]
     Indication: HYPOTHYROIDISM
  3. NITROFUR-MACR [Concomitant]
  4. VESICARE [Concomitant]
     Indication: BLADDER DISORDER

REACTIONS (3)
  - Infected cyst [Unknown]
  - Pruritus [Unknown]
  - Rash maculo-papular [Unknown]
